FAERS Safety Report 12482373 (Version 1)
Quarter: 2016Q2

REPORT INFORMATION
  Report Type: Spontaneous
  Country: FR (occurrence: FR)
  Receive Date: 20160620
  Receipt Date: 20160620
  Transmission Date: 20160815
  Serious: Yes (Other)
  Sender: FDA-Public Use
  Company Number: FR-TEVA-668302ISR

PATIENT
  Age: 47 Year
  Sex: Male

DRUGS (2)
  1. VENLAFAXINE [Suspect]
     Active Substance: VENLAFAXINE HYDROCHLORIDE
     Indication: ANTIDEPRESSANT THERAPY
     Route: 065
  2. BACLOFEN. [Interacting]
     Active Substance: BACLOFEN
     Indication: ALCOHOL REHABILITATION
     Dosage: 190 MILLIGRAM DAILY;
     Route: 048

REACTIONS (2)
  - Sleep apnoea syndrome [Recovering/Resolving]
  - Drug interaction [Unknown]
